FAERS Safety Report 7341322-4 (Version None)
Quarter: 2011Q1

REPORT INFORMATION
  Report Type: 
  Country: None (occurrence: None)
  Receive Date: 20110309
  Receipt Date: 20110301
  Transmission Date: 20110831
  Serious: Yes (Other)
  Sender: FDA-Public Use
  Company Number: NL-TEVA-270056ISR

PATIENT
  Age: 71 Year
  Sex: Male
  Weight: 85 kg

DRUGS (2)
  1. METOCLOPRAMIDE HCL [Suspect]
     Indication: NAUSEA
     Dates: start: 20090616, end: 20090617
  2. METOPROLOL TARTRATE [Suspect]
     Indication: HYPERTENSION
     Dates: start: 20100118, end: 20100119

REACTIONS (1)
  - MONOPLEGIA [None]
